FAERS Safety Report 7996535-5 (Version None)
Quarter: 2011Q4

REPORT INFORMATION
  Report Type: 
  Country: None (occurrence: None)
  Receive Date: 20111221
  Receipt Date: 20111213
  Transmission Date: 20120403
  Serious: Yes (Hospitalization)
  Sender: FDA-Public Use
  Company Number: US-BIOGENIDEC-2011BI015093

PATIENT
  Age: 70 Year
  Sex: Male

DRUGS (1)
  1. TYSABRI [Suspect]
     Indication: MULTIPLE SCLEROSIS
     Route: 042
     Dates: start: 20080717

REACTIONS (10)
  - RADIAL NERVE INJURY [None]
  - GAIT DISTURBANCE [None]
  - HEART RATE INCREASED [None]
  - DYSARTHRIA [None]
  - MUSCLE SPASMS [None]
  - SPINAL COLUMN STENOSIS [None]
  - FALL [None]
  - SINUS OPERATION [None]
  - IRON DEFICIENCY [None]
  - MULTIPLE SCLEROSIS RELAPSE [None]
